FAERS Safety Report 9981497 (Version 1)
Quarter: 2014Q1

REPORT INFORMATION
  Report Type: Spontaneous
  Country: US (occurrence: US)
  Receive Date: 20140307
  Receipt Date: 20140307
  Transmission Date: 20141002
  Serious: No
  Sender: FDA-Public Use
  Company Number: US-GLAXOSMITHKLINE-A1057263A

PATIENT
  Age: 19 Year
  Sex: Female

DRUGS (2)
  1. FABIOR [Suspect]
     Indication: ACNE
     Dosage: 1APP AT NIGHT
     Route: 061
     Dates: start: 20140111
  2. NONE [Concomitant]

REACTIONS (6)
  - Acne [Not Recovered/Not Resolved]
  - Skin exfoliation [Unknown]
  - Skin disorder [Unknown]
  - Erythema [Unknown]
  - Pruritus [Unknown]
  - Skin burning sensation [Unknown]
